FAERS Safety Report 11760519 (Version 5)
Quarter: 2025Q3

REPORT INFORMATION
  Report Type: Spontaneous
  Country: US (occurrence: US)
  Receive Date: 20151120
  Receipt Date: 20250819
  Transmission Date: 20251020
  Serious: Yes (Hospitalization)
  Sender: PFIZER
  Company Number: US-MLMSERVICE-20151109-0072764-1

PATIENT
  Age: 61 Year
  Sex: Male

DRUGS (3)
  1. DOCETAXEL [Suspect]
     Active Substance: DOCETAXEL
     Indication: Squamous cell carcinoma
  2. CISPLATIN [Concomitant]
     Active Substance: CISPLATIN
  3. FLUOROURACIL [Concomitant]
     Active Substance: FLUOROURACIL

REACTIONS (1)
  - Lung disorder [Recovered/Resolved]
